FAERS Safety Report 24806382 (Version 3)
Quarter: 2025Q3

REPORT INFORMATION
  Report Type: Report from Study
  Country: US (occurrence: US)
  Receive Date: 20250103
  Receipt Date: 20250916
  Transmission Date: 20251021
  Serious: No
  Sender: SUNOVION
  Company Number: US-SUMITOMO PHARMA SWITZERLAND GMBH-2024SPA006356

PATIENT
  Age: 58 Year
  Sex: Male

DRUGS (13)
  1. ORGOVYX [Suspect]
     Active Substance: RELUGOLIX
     Indication: Prostate cancer
     Dosage: 120 MG, QD
     Route: 048
  2. NUBEQA [Concomitant]
     Active Substance: DAROLUTAMIDE
  3. ACETAMINOPHEN [Concomitant]
     Active Substance: ACETAMINOPHEN
  4. IBUPROFEN [Concomitant]
     Active Substance: IBUPROFEN
  5. MAGNESIUM [Concomitant]
     Active Substance: MAGNESIUM
  6. VITAMIN B12 [Concomitant]
     Active Substance: CYANOCOBALAMIN
  7. DIPHENHYDRAMINE [Concomitant]
     Active Substance: DIPHENHYDRAMINE
  8. FLOMAX [Concomitant]
     Active Substance: TAMSULOSIN HYDROCHLORIDE
  9. VITAMIN D3 [Concomitant]
     Active Substance: CHOLECALCIFEROL
  10. VITAMINS [Concomitant]
     Active Substance: VITAMINS
  11. MINERALS\VITAMINS [Concomitant]
     Active Substance: MINERALS\VITAMINS
  12. TUMS [Concomitant]
     Active Substance: CALCIUM CARBONATE
  13. VITAMIN C [Concomitant]
     Active Substance: ASCORBIC ACID

REACTIONS (6)
  - Headache [Unknown]
  - Hot flush [Unknown]
  - Fatigue [Unknown]
  - Weight increased [Unknown]
  - Diarrhoea [Unknown]
  - Product dose omission issue [Recovered/Resolved]

NARRATIVE: CASE EVENT DATE: 20250827
